FAERS Safety Report 4678506-X (Version None)
Quarter: 2005Q2

REPORT INFORMATION
  Report Type: 
  Country: None (occurrence: None)
  Receive Date: 20050601
  Receipt Date: 20050531
  Transmission Date: 20051028
  Serious: Yes (Other)
  Sender: FDA-Public Use
  Company Number: PHBS2005JP07640

PATIENT
  Age: 44 Year
  Sex: Male

DRUGS (2)
  1. AMARYL [Suspect]
  2. STARSIS [Suspect]
     Indication: DIABETES MELLITUS
     Route: 048

REACTIONS (1)
  - CARDIAC FAILURE [None]
